FAERS Safety Report 9905482 (Version 1)
Quarter: 2014Q1

REPORT INFORMATION
  Report Type: Spontaneous
  Country: VE (occurrence: VE)
  Receive Date: 20140218
  Receipt Date: 20140218
  Transmission Date: 20141002
  Serious: Yes (Hospitalization, Other)
  Sender: FDA-Public Use
  Company Number: VE-ABBVIE-14P-178-1201503-00

PATIENT
  Age: 54 Year
  Sex: Female
  Weight: 89 kg

DRUGS (5)
  1. HUMIRA [Suspect]
     Indication: RHEUMATOID ARTHRITIS
     Route: 058
     Dates: start: 2011, end: 201307
  2. HUMIRA [Suspect]
     Route: 058
     Dates: start: 201312, end: 20140210
  3. CAPTOPRIL [Concomitant]
     Indication: HYPERTENSION
     Route: 048
     Dates: end: 201402
  4. DILATREND [Concomitant]
     Indication: HYPERTENSION
     Route: 048
     Dates: end: 201402
  5. HIDROCLOROTIAZIDA [Concomitant]
     Indication: HYPERTENSION
     Route: 048
     Dates: end: 201402

REACTIONS (5)
  - Anaemia [Recovering/Resolving]
  - Bronchitis [Recovered/Resolved]
  - Gastrointestinal haemorrhage [Recovering/Resolving]
  - Abscess [Recovering/Resolving]
  - Haemoglobin decreased [Recovering/Resolving]
